FAERS Safety Report 18299685 (Version 2)
Quarter: 2020Q4

REPORT INFORMATION
  Report Type: Report from Study
  Country: US (occurrence: US)
  Receive Date: 20200923
  Receipt Date: 20201123
  Transmission Date: 20210113
  Serious: Yes (Hospitalization, Other)
  Sender: FDA-Public Use
  Company Number: US-BIOGEN-2020BI00924483

PATIENT
  Sex: Female

DRUGS (3)
  1. TYSABRI [Suspect]
     Active Substance: NATALIZUMAB
     Indication: MULTIPLE SCLEROSIS
     Route: 065
     Dates: start: 20170124
  2. TYSABRI [Suspect]
     Active Substance: NATALIZUMAB
     Dosage: OFF FOR FOUR MONTHS (MARCH-JUNE)
     Route: 065
     Dates: end: 2019
  3. TYSABRI [Suspect]
     Active Substance: NATALIZUMAB
     Route: 065
     Dates: start: 20200901

REACTIONS (11)
  - Dysphagia [Not Recovered/Not Resolved]
  - Cognitive disorder [Unknown]
  - Drug ineffective [Unknown]
  - Wound [Recovered/Resolved]
  - Weight increased [Not Recovered/Not Resolved]
  - Disseminated varicella zoster virus infection [Not Recovered/Not Resolved]
  - Illness [Not Recovered/Not Resolved]
  - Dermal cyst [Unknown]
  - Gallbladder disorder [Recovered/Resolved]
  - Weight decreased [Recovered/Resolved]
  - General physical health deterioration [Not Recovered/Not Resolved]

NARRATIVE: CASE EVENT DATE: 2019
